FAERS Safety Report 17691116 (Version 2)
Quarter: 2020Q2

REPORT INFORMATION
  Report Type: Spontaneous
  Country: ES (occurrence: ES)
  Receive Date: 20200422
  Receipt Date: 20200428
  Transmission Date: 20200714
  Serious: Yes (Life-Threatening, Hospitalization)
  Sender: FDA-Public Use
  Company Number: ES-TEVA-2020-ES-1225788

PATIENT
  Age: 62 Year
  Sex: Female

DRUGS (5)
  1. CEFTRIAXONA [Interacting]
     Active Substance: CEFTRIAXONE
     Indication: CORONAVIRUS INFECTION
     Dosage: 2 GRAM DAILY;
     Route: 042
     Dates: start: 20200318, end: 20200322
  2. AZITROMICINA (7019A) [Interacting]
     Active Substance: AZITHROMYCIN
     Indication: PNEUMONIA
  3. AZITROMICINA (7019A) [Suspect]
     Active Substance: AZITHROMYCIN
     Indication: CORONAVIRUS INFECTION
     Dosage: 500 MILLIGRAM DAILY;
     Route: 048
     Dates: start: 20200323, end: 20200325
  4. DOLQUINE 200 MG COMPRIMIDOS RECUBIERTOS, 30 COMPRIMIDOS [Interacting]
     Active Substance: HYDROXYCHLOROQUINE SULFATE
     Indication: CORONAVIRUS INFECTION
     Dosage: 400 MILLIGRAM DAILY;
     Route: 048
     Dates: start: 20200319, end: 20200325
  5. CEFTRIAXONA [Interacting]
     Active Substance: CEFTRIAXONE
     Indication: PNEUMONIA

REACTIONS (3)
  - Hepatitis [Recovering/Resolving]
  - Drug interaction [Unknown]
  - Long QT syndrome [Unknown]

NARRATIVE: CASE EVENT DATE: 20200324
